FAERS Safety Report 18837405 (Version 1)
Quarter: 2021Q1

REPORT INFORMATION
  Report Type: Spontaneous
  Country: IT (occurrence: FR)
  Receive Date: 20210203
  Receipt Date: 20210203
  Transmission Date: 20210419
  Serious: Yes (Other)
  Sender: FDA-Public Use
  Company Number: FR-TEVA-2021-FR-1874647

PATIENT
  Age: 5 Decade
  Sex: Female

DRUGS (5)
  1. PEGYLATED LIPOSOMAL DOXORUBICIN [Suspect]
     Active Substance: DOXORUBICIN
     Indication: OVARIAN CANCER
     Route: 065
     Dates: end: 201810
  2. PACLITAXEL. [Suspect]
     Active Substance: PACLITAXEL
     Indication: OVARIAN CANCER
     Route: 065
     Dates: end: 201705
  3. TRABECTEDIN [Suspect]
     Active Substance: TRABECTEDIN
     Indication: OVARIAN CANCER
     Route: 065
     Dates: end: 201810
  4. OLAPARIB. [Concomitant]
     Active Substance: OLAPARIB
     Indication: OVARIAN CANCER
     Dosage: 800 MILLIGRAM DAILY;
     Route: 065
     Dates: start: 201705
  5. CARBOPLATIN. [Suspect]
     Active Substance: CARBOPLATIN
     Indication: OVARIAN CANCER
     Route: 065
     Dates: end: 201705

REACTIONS (6)
  - Anaemia [Unknown]
  - Neutropenia [Unknown]
  - Neuropathy peripheral [Unknown]
  - Febrile neutropenia [Unknown]
  - Mucosal inflammation [Unknown]
  - Transaminases increased [Unknown]

NARRATIVE: CASE EVENT DATE: 201705
